FAERS Safety Report 15789185 (Version 4)
Quarter: 2021Q2

REPORT INFORMATION
  Report Type: Spontaneous
  Country: US (occurrence: US)
  Receive Date: 20190104
  Receipt Date: 20210608
  Transmission Date: 20210716
  Serious: No
  Sender: FDA-Public Use
  Company Number: US-PFIZER INC-2019004288

PATIENT
  Age: 77 Year
  Sex: Female

DRUGS (2)
  1. AROMASIN [Suspect]
     Active Substance: EXEMESTANE
     Indication: INTRADUCTAL PROLIFERATIVE BREAST LESION
     Dosage: 25 MG, 1X/DAY
     Route: 048
  2. AROMASIN [Suspect]
     Active Substance: EXEMESTANE
     Indication: BREAST CANCER FEMALE

REACTIONS (4)
  - Oral pain [Unknown]
  - Frustration tolerance decreased [Unknown]
  - Fatigue [Unknown]
  - Oral disorder [Unknown]
